FAERS Safety Report 8116665-7 (Version None)
Quarter: 2012Q1

REPORT INFORMATION
  Report Type: 
  Country: None (occurrence: None)
  Receive Date: 20120206
  Receipt Date: 20120125
  Transmission Date: 20120608
  Serious: Yes (Hospitalization, Other)
  Sender: FDA-Public Use
  Company Number: PHHY2012DE007609

PATIENT
  Weight: 95 kg

DRUGS (8)
  1. ACE INHIBITORS [Concomitant]
  2. PLATELET AGGREGATION INHIBITORS [Concomitant]
  3. BETA BLOCKING AGENTS [Concomitant]
  4. NITRATES [Concomitant]
  5. THIENOPYRIDINES [Concomitant]
  6. DIURETICS [Concomitant]
  7. RASILEZ [Suspect]
     Indication: HYPERTENSION
     Dates: start: 20081015
  8. ANTIDEPRESSANTS [Concomitant]
     Indication: DEPRESSION

REACTIONS (2)
  - HYPERTENSION [None]
  - CEREBROVASCULAR ACCIDENT [None]
